FAERS Safety Report 7317969-8 (Version None)
Quarter: 2011Q1

REPORT INFORMATION
  Report Type: 
  Country: None (occurrence: None)
  Receive Date: 20110227
  Receipt Date: 20110117
  Transmission Date: 20110831
  Serious: No
  Sender: FDA-Public Use
  Company Number: US-BAYER-2011-005548

PATIENT
  Sex: Male
  Weight: 73 kg

DRUGS (1)
  1. ALEVE (CAPLET) [Suspect]
     Indication: ANALGESIC THERAPY
     Dosage: UNK
     Route: 048
     Dates: start: 20110101

REACTIONS (5)
  - VOMITING [None]
  - INFLUENZA [None]
  - ABDOMINAL PAIN UPPER [None]
  - INFLUENZA LIKE ILLNESS [None]
  - PYREXIA [None]
